FAERS Safety Report 5390859-6 (Version None)
Quarter: 2007Q3

REPORT INFORMATION
  Report Type: 
  Country: None (occurrence: None)
  Receive Date: 20070716
  Receipt Date: 20070703
  Transmission Date: 20080115
  Serious: Yes (Hospitalization)
  Sender: FDA-Public Use
  Company Number: 230420K07CAN

PATIENT
  Sex: Female

DRUGS (1)
  1. REBIF [Suspect]
     Indication: RELAPSING-REMITTING MULTIPLE SCLEROSIS
     Dosage: SUBCUTANEOUS
     Route: 058
     Dates: start: 20070501

REACTIONS (9)
  - ABDOMINAL PAIN [None]
  - CHILLS [None]
  - HEADACHE [None]
  - KIDNEY INFECTION [None]
  - MOBILITY DECREASED [None]
  - PYREXIA [None]
  - SENSORY DISTURBANCE [None]
  - SEPSIS [None]
  - URINARY TRACT INFECTION [None]
